FAERS Safety Report 8872582 (Version 1)
Quarter: 2012Q4

REPORT INFORMATION
  Report Type: 
  Country: US (occurrence: US)
  Receive Date: 20121026
  Receipt Date: 20121026
  Transmission Date: 20130627
  Serious: No
  Sender: FDA-Public Use
  Company Number: US-AMGEN-USASP2012049414

PATIENT
  Age: 38 Year
  Sex: Female
  Weight: 77.1 kg

DRUGS (15)
  1. ENBREL [Suspect]
     Indication: ARTHRITIS
     Dosage: 50 mg, qwk
     Route: 058
  2. HUMIRA [Concomitant]
     Dosage: 40mg/0.8, UNK
     Route: 058
  3. APRISO [Concomitant]
     Dosage: 0.375 g, UNK
     Route: 048
  4. IMITREX                            /01044801/ [Concomitant]
     Dosage: 25 mg, UNK
     Route: 048
  5. TOPAMAX [Concomitant]
     Dosage: 100 mg, UNK
     Route: 048
  6. ZOFRAN                             /00955301/ [Concomitant]
     Dosage: 4 mg, UNK
     Route: 048
  7. VITAMIN K                          /00032401/ [Concomitant]
     Dosage: 100 mug, UNK
     Route: 048
  8. VITAMIN B 6 [Concomitant]
     Dosage: 50 mg, UNK
     Route: 048
  9. VITAMIN D3 [Concomitant]
     Dosage: 2000 UNK, UNK
     Route: 048
  10. VITAMIN B 12 [Concomitant]
     Dosage: 100 mug, UNK
     Route: 048
  11. CALCIUM + VIT D [Concomitant]
     Route: 048
  12. GLUCOSAMINE + CHONDROITIN          /01430901/ [Concomitant]
     Route: 048
  13. NEURONTIN [Concomitant]
     Dosage: 600 mg, UNK
     Route: 048
  14. NORCO [Concomitant]
     Dosage: 5-325 mg
     Route: 048
  15. ATIVAN [Concomitant]
     Dosage: 0.5 mg, UNK
     Route: 048

REACTIONS (3)
  - Injection site bruising [Unknown]
  - Injection site pain [Unknown]
  - Drug ineffective [Unknown]
